FAERS Safety Report 9284264 (Version 2)
Quarter: 2013Q2

REPORT INFORMATION
  Report Type: Spontaneous
  Country: FR (occurrence: FR)
  Receive Date: 20130510
  Receipt Date: 20130514
  Transmission Date: 20140414
  Serious: Yes (Death, Other)
  Sender: FDA-Public Use
  Company Number: FR-PFIZER INC-2013059207

PATIENT
  Age: 71 Year
  Sex: Male
  Weight: 70 kg

DRUGS (8)
  1. ARGATROBAN [Suspect]
     Indication: HEPARIN-INDUCED THROMBOCYTOPENIA
     Dosage: 2 UG/KG, 1 MIN
     Route: 041
     Dates: start: 20130201, end: 20130201
  2. ARGATROBAN [Suspect]
     Dosage: 1.2 UG/KG/MIN
     Route: 041
     Dates: start: 20130202, end: 20130202
  3. ARGATROBAN [Suspect]
     Dosage: 1 UG/KG/MIN
     Route: 041
     Dates: start: 20130203, end: 20130203
  4. ARGATROBAN [Suspect]
     Dosage: 0.6 UG/KG/MIN
     Route: 041
     Dates: start: 20130203, end: 20130203
  5. ARGATROBAN [Suspect]
     Dosage: 0.5 UG/KG/MIN
     Route: 041
     Dates: start: 20130204, end: 20130204
  6. ARGATROBAN [Suspect]
     Dosage: 0.5 UG/KG/MIN
     Route: 041
     Dates: start: 20130205, end: 20130205
  7. ARGATROBAN [Suspect]
     Dosage: UNK
  8. ORGARAN [Concomitant]
     Indication: HEPARIN-INDUCED THROMBOCYTOPENIA
     Dosage: 250 IU, PER HOUR
     Dates: start: 20130128, end: 20130201

REACTIONS (3)
  - Cerebral haemorrhage [Fatal]
  - Subdural haematoma [Unknown]
  - Inappropriate schedule of drug administration [Recovered/Resolved]
